FAERS Safety Report 13644148 (Version 2)
Quarter: 2017Q3

REPORT INFORMATION
  Report Type: Report from Study
  Country: US (occurrence: US)
  Receive Date: 20170612
  Receipt Date: 20170711
  Transmission Date: 20171127
  Serious: Yes (Hospitalization)
  Sender: FDA-Public Use
  Company Number: US-ACTELION-A-US2017-155004

PATIENT
  Age: 49 Year
  Sex: Female
  Weight: 79.82 kg

DRUGS (3)
  1. ADCIRCA [Concomitant]
     Active Substance: TADALAFIL
  2. UPTRAVI [Suspect]
     Active Substance: SELEXIPAG
     Indication: PULMONARY ARTERIAL HYPERTENSION
     Dosage: 1600 MCG, BID
     Route: 048
  3. OPSUMIT [Suspect]
     Active Substance: MACITENTAN
     Indication: PULMONARY ARTERIAL HYPERTENSION
     Dosage: UNK
     Route: 048
     Dates: start: 20150911

REACTIONS (7)
  - Vomiting [Unknown]
  - Flank pain [Unknown]
  - Nephrolithiasis [Unknown]
  - Lithotripsy [Unknown]
  - Nausea [Unknown]
  - Pain [Unknown]
  - Renal colic [Recovered/Resolved]

NARRATIVE: CASE EVENT DATE: 20170510
